FAERS Safety Report 11027766 (Version 2)
Quarter: 2015Q2

REPORT INFORMATION
  Report Type: Report from Study
  Country: US (occurrence: US)
  Receive Date: 20150414
  Receipt Date: 20150504
  Transmission Date: 20150821
  Serious: Yes (Other)
  Sender: FDA-Public Use
  Company Number: US-GILEAD-2015-0148278

PATIENT
  Age: 29 Year
  Sex: Female

DRUGS (2)
  1. ORENITRAM [Concomitant]
     Active Substance: TREPROSTINIL
  2. AMBRISENTAN [Suspect]
     Active Substance: AMBRISENTAN
     Indication: PRODUCT USED FOR UNKNOWN INDICATION
     Dosage: 10 MG, QD
     Route: 065
     Dates: start: 20071212

REACTIONS (7)
  - Headache [Unknown]
  - Bronchiolitis [Unknown]
  - Chest pain [Unknown]
  - Weight fluctuation [Unknown]
  - Diarrhoea [Not Recovered/Not Resolved]
  - Blood potassium abnormal [Unknown]
  - Nausea [Unknown]
